FAERS Safety Report 5023067-9 (Version None)
Quarter: 2006Q2

REPORT INFORMATION
  Report Type: 
  Country: None (occurrence: None)
  Receive Date: 20060612
  Receipt Date: 20060601
  Transmission Date: 20061013
  Serious: Yes (Other)
  Sender: FDA-Public Use
  Company Number: US-JNJFOC-20060502402

PATIENT
  Sex: Female
  Weight: 60.78 kg

DRUGS (9)
  1. REMICADE [Suspect]
     Indication: RHEUMATOID ARTHRITIS
     Dosage: DOSE 300-400 MG
     Route: 042
  2. METHOTREXATE [Concomitant]
  3. METHOTREXATE [Concomitant]
     Indication: RHEUMATOID ARTHRITIS
  4. FOLIC ACID [Concomitant]
     Indication: RHEUMATOID ARTHRITIS
  5. PRILOSEC [Concomitant]
     Indication: DYSPEPSIA
  6. PREMARIN [Concomitant]
  7. PREDNISONE [Concomitant]
     Indication: RHEUMATOID ARTHRITIS
  8. DIOVAN HCT [Concomitant]
  9. DIOVAN HCT [Concomitant]
     Indication: HYPERTENSION
     Dosage: 160/12.5 DAILY

REACTIONS (1)
  - BREAST CANCER STAGE III [None]
